FAERS Safety Report 7601481-2 (Version None)
Quarter: 2011Q2

REPORT INFORMATION
  Report Type: 
  Country: None (occurrence: None)
  Receive Date: 20110629
  Receipt Date: 20110615
  Transmission Date: 20111010
  Serious: Yes (Hospitalization)
  Sender: FDA-Public Use
  Company Number: 2011MA007239

PATIENT
  Age: 35 Year
  Sex: Female

DRUGS (1)
  1. RIFAMPIN [Suspect]
     Indication: HIDRADENITIS

REACTIONS (4)
  - RENAL FAILURE ACUTE [None]
  - KIDNEY ENLARGEMENT [None]
  - TUBULOINTERSTITIAL NEPHRITIS [None]
  - HAEMODIALYSIS [None]
